FAERS Safety Report 18452702 (Version 1)
Quarter: 2020Q4

REPORT INFORMATION
  Report Type: Spontaneous
  Country: US (occurrence: US)
  Receive Date: 20201102
  Receipt Date: 20201102
  Transmission Date: 20210114
  Serious: No
  Sender: FDA-Public Use
  Company Number: None

PATIENT
  Age: 58 Year
  Sex: Male
  Weight: 87.5 kg

DRUGS (1)
  1. DULOXETINE HYDROCHLORIDE. [Suspect]
     Active Substance: DULOXETINE HYDROCHLORIDE
     Dates: end: 20201023

REACTIONS (10)
  - Diarrhoea [None]
  - Colitis [None]
  - Abdominal rebound tenderness [None]
  - Clostridium difficile colitis [None]
  - Decreased appetite [None]
  - Abdominal pain [None]
  - White blood cell count increased [None]
  - Abdominal distension [None]
  - Weight decreased [None]
  - Fatigue [None]

NARRATIVE: CASE EVENT DATE: 20201021
